FAERS Safety Report 6445284-3 (Version None)
Quarter: 2009Q4

REPORT INFORMATION
  Report Type: 
  Country: None (occurrence: None)
  Receive Date: 20091118
  Receipt Date: 20091106
  Transmission Date: 20100525
  Serious: Yes (Death)
  Sender: FDA-Public Use
  Company Number: GB-JNJFOC-20091102686

PATIENT
  Age: 66 Year
  Sex: Female

DRUGS (7)
  1. REMICADE [Suspect]
     Indication: RHEUMATOID ARTHRITIS
     Route: 042
     Dates: start: 20060503
  2. METHOTREXATE [Concomitant]
  3. PREDNISOLONE [Concomitant]
  4. FOLIC ACID [Concomitant]
  5. RANITIDINE [Concomitant]
  6. RELIFEX [Concomitant]
  7. TRAMADOL HCL [Concomitant]

REACTIONS (2)
  - SKIN ULCER [None]
  - UROSEPSIS [None]
